FAERS Safety Report 25521172 (Version 2)
Quarter: 2025Q3

REPORT INFORMATION
  Report Type: Spontaneous
  Country: CA (occurrence: CA)
  Receive Date: 20250705
  Receipt Date: 20250801
  Transmission Date: 20251020
  Serious: Yes (Hospitalization)
  Sender: VELOXIS PHARMACEUTICALS
  Company Number: CA-VELOXIS PHARMACEUTICALS, INC.-2025-VEL-00191

PATIENT
  Age: 55 Year
  Sex: Male

DRUGS (1)
  1. TACROLIMUS [Suspect]
     Active Substance: TACROLIMUS
     Indication: Renal transplant

REACTIONS (1)
  - Renal disorder [Unknown]
